FAERS Safety Report 13620360 (Version 1)
Quarter: 2017Q2

REPORT INFORMATION
  Report Type: Spontaneous
  Country: US (occurrence: US)
  Receive Date: 20170607
  Receipt Date: 20170607
  Transmission Date: 20170830
  Serious: No
  Sender: FDA-Public Use
  Company Number: None

PATIENT
  Age: 45 Year
  Sex: Female

DRUGS (6)
  1. FERROUS GLUC [Concomitant]
  2. AZATHIOPRINE. [Concomitant]
     Active Substance: AZATHIOPRINE
  3. IRON [Concomitant]
     Active Substance: IRON
  4. OCALIVA [Suspect]
     Active Substance: OBETICHOLIC ACID
     Indication: BILIARY CIRRHOSIS PRIMARY
     Route: 048
     Dates: start: 20170509
  5. URSODIOL. [Concomitant]
     Active Substance: URSODIOL
  6. WARFARION [Concomitant]

REACTIONS (1)
  - Pruritus generalised [None]

NARRATIVE: CASE EVENT DATE: 20170509
